FAERS Safety Report 5723246-9 (Version None)
Quarter: 2008Q2

REPORT INFORMATION
  Report Type: 
  Country: None (occurrence: None)
  Receive Date: 20080430
  Receipt Date: 20080207
  Transmission Date: 20081010
  Serious: No
  Sender: FDA-Public Use
  Company Number: US-ASTRAZENECA-2008UW02573

PATIENT
  Age: 34 Year
  Sex: Female
  Weight: 72.6 kg

DRUGS (2)
  1. NEXIUM [Suspect]
     Indication: GASTROOESOPHAGEAL REFLUX DISEASE
     Route: 048
     Dates: start: 20071201, end: 20080206
  2. NEXIUM [Suspect]
     Indication: LARYNGEAL DISORDER
     Route: 048
     Dates: start: 20071201, end: 20080206

REACTIONS (3)
  - PHARYNGOLARYNGEAL PAIN [None]
  - RASH [None]
  - SWELLING [None]
